FAERS Safety Report 24400301 (Version 1)
Quarter: 2024Q4

REPORT INFORMATION
  Report Type: Spontaneous
  Country: US (occurrence: US)
  Receive Date: 20241005
  Receipt Date: 20241005
  Transmission Date: 20250115
  Serious: No
  Sender: CSL BEHRING
  Company Number: US-BEH-2024180844

PATIENT
  Age: 44 Year
  Sex: Male

DRUGS (31)
  1. HIZENTRA [Suspect]
     Active Substance: HUMAN IMMUNOGLOBULIN G
     Indication: Immunodeficiency
     Dosage: 1 GM/5ML (WITHDRAW 35 ML INTO A 50 ML SYRINGE, INFUSE 35 ML (7 GM) SUBCUTANEOUSLY ONCE EVERY THROUGH
     Route: 058
     Dates: start: 20210122
  2. HIZENTRA [Suspect]
     Active Substance: HUMAN IMMUNOGLOBULIN G
     Dosage: 2 GM/10ML: WITHDRAW 35 ML INTO A 50 ML SYRINGE. INFUSE 35 ML (7 GM) SUBCUTANEOUSLY ONCE EVERY WEEK T
     Route: 058
     Dates: start: 20210122
  3. HIZENTRA [Suspect]
     Active Substance: HUMAN IMMUNOGLOBULIN G
     Dosage: 4 GM/20ML: WITHDRAW 35 ML INTO A 50 ML SYRINGE. INFUSE 35 ML (7 GM) SUBCUTANEOUSLY ONCE EVERY WEEK T
     Route: 058
     Dates: start: 20210122
  4. AMITRIPTYLINE [Concomitant]
     Active Substance: AMITRIPTYLINE
     Dosage: 25 MG TAB
  5. AZELASTINE [Concomitant]
     Active Substance: AZELASTINE
     Dosage: 01 %
  6. BELSOMRA [Concomitant]
     Active Substance: SUVOREXANT
     Dosage: 20 MG TAB
  7. CLONAZEPAM [Concomitant]
     Active Substance: CLONAZEPAM
     Dosage: 2 MG TAB
  8. EPINEPHRINE [Concomitant]
     Active Substance: EPINEPHRINE
     Dosage: 0.3 MG
  9. HYDROCHLOROTHIAZIDE [Concomitant]
     Active Substance: HYDROCHLOROTHIAZIDE
     Dosage: 12.5 MG CAP
  10. HYDROXYZINE HYDROCHLORIDE [Concomitant]
     Active Substance: HYDROXYZINE HYDROCHLORIDE
     Dosage: 50 MG TAB
  11. HYDROXYZINE PAMOATE [Concomitant]
     Active Substance: HYDROXYZINE PAMOATE
     Dosage: 50 MG CAP
  12. IPRATROPIUM [Concomitant]
     Active Substance: IPRATROPIUM
     Dosage: 0.06 % SPRAY
  13. LINZESS [Concomitant]
     Active Substance: LINACLOTIDE
     Dosage: 145 MCG CAPSULE
  14. LINZESS [Concomitant]
     Active Substance: LINACLOTIDE
     Dosage: 290 MCG  CAPSULE
  15. LOSARTAN POTASSIUM [Concomitant]
     Active Substance: LOSARTAN POTASSIUM
     Dosage: 100 MG TAB
  16. LOSARTAN/HCT MSD [Concomitant]
     Dosage: TAB 100-12.5
  17. MOTEGRITY [Concomitant]
     Active Substance: PRUCALOPRIDE SUCCINATE
     Dosage: 2 MG TAB
  18. NURTEC ODT [Concomitant]
     Active Substance: RIMEGEPANT SULFATE
     Dosage: 75 MG
  19. ASPIRIN\OXYCODONE HYDROCHLORIDE [Concomitant]
     Active Substance: ASPIRIN\OXYCODONE HYDROCHLORIDE
     Dosage: TAB 10-325MG
  20. PIMECROLIMUS [Concomitant]
     Active Substance: PIMECROLIMUS
     Dosage: 1 %
  21. REXULTI [Concomitant]
     Active Substance: BREXPIPRAZOLE
     Dosage: 1 MG TAB
  22. REXULTI [Concomitant]
     Active Substance: BREXPIPRAZOLE
     Dosage: 2 MG TAB
  23. RIZATRIPTAN [Concomitant]
     Active Substance: RIZATRIPTAN
     Dosage: 10 MG ODT TAB
  24. TESTOSTERONE [Concomitant]
     Active Substance: TESTOSTERONE
     Dosage: 200 MG/ML
  25. TIZANIDINE [Concomitant]
     Active Substance: TIZANIDINE
     Dosage: 4 MG TAB
  26. TRAZODONE [Concomitant]
     Active Substance: TRAZODONE HYDROCHLORIDE
     Dosage: 50 MG TAB
  27. TRULANCE [Concomitant]
     Active Substance: PLECANATIDE
     Dosage: 3 MG TAB
  28. ZOLPIDEM [Concomitant]
     Active Substance: ZOLPIDEM TARTRATE
     Dosage: 12.5 MG TAB
  29. ZUBSOLV [Concomitant]
     Active Substance: BUPRENORPHINE HYDROCHLORIDE\NALOXONE HYDROCHLORIDE
     Dosage: SUB 1.4-0.36
  30. ZUBSOLV [Concomitant]
     Active Substance: BUPRENORPHINE HYDROCHLORIDE\NALOXONE HYDROCHLORIDE
     Dosage: SUB 2.9-0.71UNK
  31. ZUBSOLV [Concomitant]
     Active Substance: BUPRENORPHINE HYDROCHLORIDE\NALOXONE HYDROCHLORIDE
     Dosage: SUB 5.7-1.4

REACTIONS (1)
  - Illness [Not Recovered/Not Resolved]

NARRATIVE: CASE EVENT DATE: 20240726
